FAERS Safety Report 21373945 (Version 4)
Quarter: 2022Q4

REPORT INFORMATION
  Report Type: Report from Study
  Country: CO (occurrence: CO)
  Receive Date: 20220926
  Receipt Date: 20221209
  Transmission Date: 20230113
  Serious: Yes (Hospitalization, Other)
  Sender: FDA-Public Use
  Company Number: CO-NOVARTISPH-NVSC2022CO180545

PATIENT
  Sex: Male

DRUGS (1)
  1. BROLUCIZUMAB [Suspect]
     Active Substance: BROLUCIZUMAB
     Indication: Macular degeneration
     Dosage: 120 MG, QMO (IN THE EYE)
     Route: 047

REACTIONS (5)
  - Infarction [Unknown]
  - Arterial occlusive disease [Unknown]
  - Illness [Recovering/Resolving]
  - Eye haemorrhage [Unknown]
  - Incorrect dose administered [Unknown]
